FAERS Safety Report 5041066-8 (Version None)
Quarter: 2006Q3

REPORT INFORMATION
  Report Type: 
  Country: None (occurrence: None)
  Receive Date: 20060703
  Receipt Date: 20060621
  Transmission Date: 20061208
  Serious: Yes (Life-Threatening, Hospitalization)
  Sender: FDA-Public Use
  Company Number: ES-GILEAD-2006-0009790

PATIENT
  Age: 51 Year
  Sex: Male

DRUGS (2)
  1. TRUVADA [Suspect]
     Route: 048
     Dates: start: 20050830, end: 20060428
  2. KALETRA [Suspect]
     Route: 048
     Dates: start: 20041013, end: 20060428

REACTIONS (2)
  - AGRANULOCYTOSIS [None]
  - RENAL FAILURE ACUTE [None]
